FAERS Safety Report 4876167-8 (Version None)
Quarter: 2006Q1

REPORT INFORMATION
  Report Type: 
  Country: None (occurrence: None)
  Receive Date: 20060106
  Receipt Date: 20051223
  Transmission Date: 20060701
  Serious: Yes (Other)
  Sender: FDA-Public Use
  Company Number: IT200512002697

PATIENT
  Age: 53 Year
  Sex: Male

DRUGS (3)
  1. CIALIS [Suspect]
     Indication: ERECTILE DYSFUNCTION
     Dosage: 20 MG, ORAL
     Route: 048
     Dates: start: 20051025, end: 20051025
  2. OMEGA 3 (FISH OIL) [Concomitant]
  3. CHOLESTER- AND TRIGLYCERIDES REDUCERS [Concomitant]

REACTIONS (1)
  - VISUAL ACUITY REDUCED [None]
